FAERS Safety Report 19269409 (Version 2)
Quarter: 2021Q2

REPORT INFORMATION
  Report Type: Spontaneous
  Country: DE (occurrence: DE)
  Receive Date: 20210517
  Receipt Date: 20210522
  Transmission Date: 20210717
  Serious: Yes (Death, Other)
  Sender: FDA-Public Use
  Company Number: DE-ABBVIE-21K-062-3908174-00

PATIENT

DRUGS (8)
  1. ELZONRIS [Suspect]
     Active Substance: TAGRAXOFUSP-ERZS
     Indication: BLASTIC PLASMACYTOID DENDRITIC CELL NEOPLASIA
     Dosage: CYCLE 4; COMBINATION OF TAG + AZACYTIDINE
     Route: 042
  2. ELZONRIS [Suspect]
     Active Substance: TAGRAXOFUSP-ERZS
     Dosage: CYCLE 5; IN COMBINATION WITH VENETOCLAX
     Route: 042
  3. ELZONRIS [Suspect]
     Active Substance: TAGRAXOFUSP-ERZS
     Route: 042
  4. ELZONRIS [Suspect]
     Active Substance: TAGRAXOFUSP-ERZS
     Dosage: CYCLE 3
     Route: 042
  5. ELZONRIS [Suspect]
     Active Substance: TAGRAXOFUSP-ERZS
     Dosage: CYCLE 2
     Route: 042
  6. AZACITIDINE. [Suspect]
     Active Substance: AZACITIDINE
     Indication: BLASTIC PLASMACYTOID DENDRITIC CELL NEOPLASIA
     Route: 065
  7. VENETOCLAX. [Suspect]
     Active Substance: VENETOCLAX
     Indication: BLASTIC PLASMACYTOID DENDRITIC CELL NEOPLASIA
     Route: 048
  8. ELZONRIS [Suspect]
     Active Substance: TAGRAXOFUSP-ERZS
     Dosage: CYCLE 6
     Route: 042

REACTIONS (2)
  - Death [Fatal]
  - Disease progression [Not Recovered/Not Resolved]
